FAERS Safety Report 18707907 (Version 5)
Quarter: 2022Q4

REPORT INFORMATION
  Report Type: Report from Study
  Country: JP (occurrence: JP)
  Receive Date: 20210106
  Receipt Date: 20221025
  Transmission Date: 20230113
  Serious: Yes (Hospitalization)
  Sender: FDA-Public Use
  Company Number: JP-ACTELION-A-CH2017-157107

PATIENT
  Age: 2 Year
  Sex: Male
  Weight: 13.9 kg

DRUGS (26)
  1. OPSUMIT [Suspect]
     Active Substance: MACITENTAN
     Indication: Pulmonary arterial hypertension
     Dosage: 1 MG, BID
     Route: 048
     Dates: start: 20161124, end: 20170111
  2. OPSUMIT [Suspect]
     Active Substance: MACITENTAN
     Dosage: 1.5 MG, BID
     Route: 048
     Dates: start: 20170112, end: 20180712
  3. OPSUMIT [Suspect]
     Active Substance: MACITENTAN
     Dosage: 2 MG, BID
     Route: 048
     Dates: start: 20180713
  4. OPSUMIT [Suspect]
     Active Substance: MACITENTAN
     Route: 048
     Dates: start: 20161124, end: 20190422
  5. OPSUMIT [Suspect]
     Active Substance: MACITENTAN
     Route: 048
     Dates: start: 20190423
  6. UPTRAVI [Suspect]
     Active Substance: SELEXIPAG
     Indication: Pulmonary arterial hypertension
     Dosage: 0.05 MG, BID
     Route: 048
     Dates: start: 20180328, end: 20180423
  7. UPTRAVI [Suspect]
     Active Substance: SELEXIPAG
     Indication: Pulmonary arterial hypertension
     Dosage: 0.1 MG, BID
     Route: 048
     Dates: start: 20180424, end: 20180531
  8. UPTRAVI [Suspect]
     Active Substance: SELEXIPAG
     Dosage: 0.15 MG, BID
     Route: 048
     Dates: start: 20180601, end: 20180620
  9. UPTRAVI [Suspect]
     Active Substance: SELEXIPAG
     Dosage: 0.2 MG, BID
     Route: 048
     Dates: start: 20180621, end: 20181206
  10. UPTRAVI [Suspect]
     Active Substance: SELEXIPAG
     Route: 048
     Dates: start: 20181207, end: 20190117
  11. UPTRAVI [Suspect]
     Active Substance: SELEXIPAG
     Route: 048
     Dates: start: 20190118, end: 20190228
  12. UPTRAVI [Suspect]
     Active Substance: SELEXIPAG
     Route: 048
     Dates: start: 20190301, end: 20190829
  13. UPTRAVI [Suspect]
     Active Substance: SELEXIPAG
     Route: 048
     Dates: start: 20190830, end: 20191216
  14. UPTRAVI [Suspect]
     Active Substance: SELEXIPAG
     Route: 048
     Dates: start: 20191217, end: 20210204
  15. UPTRAVI [Suspect]
     Active Substance: SELEXIPAG
     Dosage: ON 05 FEB 2021, THE DOSE OF UPTRAVI WAS INCREASED TO 0.236MG X 2/DAY.
     Route: 048
     Dates: start: 20210205
  16. ADCIRCA [Suspect]
     Active Substance: TADALAFIL
     Indication: Pulmonary arterial hypertension
     Dosage: 8 MG, QD
     Route: 048
     Dates: start: 20161204, end: 20180208
  17. ADCIRCA [Suspect]
     Active Substance: TADALAFIL
     Indication: Therapy change
     Dosage: 10 MG, QD
     Route: 048
     Dates: start: 20180209
  18. ADCIRCA [Suspect]
     Active Substance: TADALAFIL
     Dosage: 10 MG, QD
     Route: 048
     Dates: start: 20140829, end: 20190523
  19. ADCIRCA [Suspect]
     Active Substance: TADALAFIL
     Route: 048
     Dates: start: 20190524, end: 20201209
  20. ADCIRCA [Suspect]
     Active Substance: TADALAFIL
     Route: 048
     Dates: start: 20201210
  21. VENTAVIS [Concomitant]
     Active Substance: ILOPROST
     Indication: Pulmonary arterial hypertension
  22. CARBOCYSTEINE [Concomitant]
     Active Substance: CARBOCYSTEINE
  23. PRANLUKAST [Concomitant]
     Active Substance: PRANLUKAST
  24. EPHEDRA SINICA STEM\HERBALS [Concomitant]
     Active Substance: EPHEDRA SINICA STEM\HERBALS
  25. ATARAX-P [HYDROXYZINE HYDROCHLORIDE] [Concomitant]
  26. OXYGEN [Concomitant]
     Active Substance: OXYGEN

REACTIONS (14)
  - Respiratory syncytial virus infection [Recovering/Resolving]
  - Cough [Recovering/Resolving]
  - Rhinorrhoea [Recovering/Resolving]
  - Pyrexia [Recovering/Resolving]
  - Dysphagia [Recovering/Resolving]
  - Pneumonia [Recovering/Resolving]
  - Aphthous ulcer [Recovering/Resolving]
  - White blood cell count increased [Recovered/Resolved]
  - Blood alkaline phosphatase increased [Recovered/Resolved]
  - Anaemia [Not Recovered/Not Resolved]
  - Platelet count increased [Recovered/Resolved]
  - Brain natriuretic peptide increased [Recovered/Resolved]
  - Diarrhoea [Recovered/Resolved]
  - Off label use [Unknown]

NARRATIVE: CASE EVENT DATE: 20161212
